FAERS Safety Report 9910795 (Version 2)
Quarter: 2014Q1

REPORT INFORMATION
  Report Type: Report from Study
  Country: CA (occurrence: CA)
  Receive Date: 20140219
  Receipt Date: 20140219
  Transmission Date: 20141002
  Serious: Yes (Other)
  Sender: FDA-Public Use
  Company Number: CA-BRISTOL-MYERS SQUIBB COMPANY-18866855

PATIENT
  Age: 43 Year
  Sex: Female

DRUGS (9)
  1. ORENCIA [Suspect]
     Indication: RHEUMATOID ARTHRITIS
     Dosage: 1DF:750-UNITS NOS?3A80545-SEP2015?3D77153-SEP 2015.
     Dates: start: 20130128, end: 20130922
  2. ENBREL [Concomitant]
  3. METHOTREXATE [Concomitant]
  4. PLAQUENIL [Concomitant]
  5. ADALAT [Concomitant]
  6. MORPHINE [Concomitant]
  7. ATIVAN [Concomitant]
  8. VITAMIN D [Concomitant]
  9. LEUCOVORIN [Concomitant]

REACTIONS (7)
  - Diabetes mellitus [Unknown]
  - Urinary tract infection [Not Recovered/Not Resolved]
  - Dysuria [Unknown]
  - Vitamin B12 deficiency [Unknown]
  - Anaemia [Unknown]
  - Skin disorder [Unknown]
  - Drug ineffective [Unknown]
